FAERS Safety Report 15144562 (Version 1)
Quarter: 2018Q3

REPORT INFORMATION
  Report Type: Spontaneous
  Country: US (occurrence: US)
  Receive Date: 20180713
  Receipt Date: 20180713
  Transmission Date: 20181010
  Serious: No
  Sender: FDA-Public Use
  Company Number: US-NOVOPROD-609461

PATIENT

DRUGS (3)
  1. HUMALOG [Concomitant]
     Active Substance: INSULIN LISPRO
     Indication: DIABETES MELLITUS
     Route: 058
  2. FIASP [Suspect]
     Active Substance: INSULIN ASPART
     Indication: DIABETES MELLITUS
     Dosage: 40 U, UNK
     Route: 058
  3. FIASP [Suspect]
     Active Substance: INSULIN ASPART
     Dosage: 20 U, UNK
     Route: 058

REACTIONS (3)
  - Wrong technique in product usage process [Unknown]
  - Hypoglycaemia [Unknown]
  - Blood glucose increased [Unknown]
